FAERS Safety Report 4835664-1 (Version None)
Quarter: 2005Q4

REPORT INFORMATION
  Report Type: 
  Country: None (occurrence: None)
  Receive Date: 20051121
  Receipt Date: 20051107
  Transmission Date: 20060501
  Serious: Yes (Other)
  Sender: FDA-Public Use
  Company Number: HQWYE021514AP05

PATIENT
  Age: 53 Year
  Sex: Female
  Weight: 95.34 kg

DRUGS (4)
  1. PREMPRO [Suspect]
     Indication: HORMONE REPLACEMENT THERAPY
  2. ALTACE [Suspect]
  3. PREMARIN [Suspect]
  4. PROVERA [Suspect]

REACTIONS (5)
  - BREAST CANCER METASTATIC [None]
  - METASTASES TO LYMPH NODES [None]
  - OESTROGEN RECEPTOR ASSAY POSITIVE [None]
  - PROGESTERONE RECEPTOR ASSAY POSITIVE [None]
  - STEM CELL TRANSPLANT [None]
